FAERS Safety Report 5298939-0 (Version None)
Quarter: 2007Q2

REPORT INFORMATION
  Report Type: 
  Country: None (occurrence: None)
  Receive Date: 20070412
  Receipt Date: 20070412
  Transmission Date: 20071010
  Serious: Yes (Death)
  Sender: FDA-Public Use
  Company Number: None

PATIENT
  Age: 5 Year
  Sex: Male
  Weight: 14.5151 kg

DRUGS (2)
  1. ZELNORM [Suspect]
     Indication: CONSTIPATION
     Dosage: 6 MG BID OTHER
     Dates: start: 20050310, end: 20050621
  2. ZELNORM [Suspect]
     Indication: ILEUS PARALYTIC
     Dosage: 6 MG BID OTHER
     Dates: start: 20050310, end: 20050621

REACTIONS (3)
  - ABDOMINAL PAIN [None]
  - HAEMORRHAGE [None]
  - INTESTINAL ISCHAEMIA [None]
